FAERS Safety Report 19503356 (Version 1)
Quarter: 2021Q3

REPORT INFORMATION
  Report Type: Spontaneous
  Country: US (occurrence: US)
  Receive Date: 20210708
  Receipt Date: 20210708
  Transmission Date: 20211014
  Serious: No
  Sender: FDA-Public Use
  Company Number: US-009507513-2106USA002873

PATIENT
  Age: 33 Year
  Sex: Female

DRUGS (2)
  1. PRINIVIL [Suspect]
     Active Substance: LISINOPRIL
     Indication: PERIPARTUM CARDIOMYOPATHY
     Dosage: 10 MILLIGRAM, QD
     Route: 048
  2. METOPROLOL SUCCINATE. [Concomitant]
     Active Substance: METOPROLOL SUCCINATE
     Indication: PERIPARTUM CARDIOMYOPATHY
     Dosage: 25 MILLIGRAM, QD

REACTIONS (1)
  - Product use issue [Unknown]
